FAERS Safety Report 4691076-5 (Version None)
Quarter: 2005Q2

REPORT INFORMATION
  Report Type: 
  Country: None (occurrence: None)
  Receive Date: 20050610
  Receipt Date: 20050530
  Transmission Date: 20051028
  Serious: Yes (Hospitalization)
  Sender: FDA-Public Use
  Company Number: EM2005-0276

PATIENT
  Age: 41 Year
  Sex: Male
  Weight: 58 kg

DRUGS (5)
  1. PROLEUKIN [Suspect]
     Indication: RENAL CELL CARCINOMA STAGE UNSPECIFIED
     Dosage: 18 MIU, SUBCUTAN.
     Route: 058
     Dates: start: 20050318, end: 20050323
  2. FOLIC ACID [Concomitant]
  3. INTERFERON ALFA-2B            (INTERFERON ALFA-2B) [Concomitant]
  4. FERROUS SULPHATE                       (FERROUS SULPHATE) [Concomitant]
  5. MEGACE [Concomitant]

REACTIONS (10)
  - BLISTER [None]
  - FAT NECROSIS [None]
  - INJECTION SITE NECROSIS [None]
  - OEDEMA [None]
  - PYREXIA [None]
  - RASH VESICULAR [None]
  - SKIN EXFOLIATION [None]
  - ULCER [None]
  - URINARY RETENTION [None]
  - WEIGHT INCREASED [None]
